FAERS Safety Report 13181033 (Version 1)
Quarter: 2017Q1

REPORT INFORMATION
  Report Type: Spontaneous
  Country: US (occurrence: US)
  Receive Date: 20170202
  Receipt Date: 20170202
  Transmission Date: 20170428
  Serious: No
  Sender: FDA-Public Use
  Company Number: US-SMITH AND NEPHEW, INC-2016SMT00766

PATIENT
  Age: 79 Year
  Sex: Male
  Weight: 114.74 kg

DRUGS (14)
  1. PRADAXA [Concomitant]
     Active Substance: DABIGATRAN ETEXILATE MESYLATE
     Dosage: 1 TABLETS, 2X/DAY
  2. DIGOXIN. [Concomitant]
     Active Substance: DIGOXIN
     Dosage: 1 TABLETS, 1X/DAY
  3. VITAMIN D3 [Concomitant]
     Active Substance: CHOLECALCIFEROL
     Dosage: 1 TABLETS, 1X/DAY
  4. REGRANEX [Suspect]
     Active Substance: BECAPLERMIN
     Indication: WOUND
     Dosage: UNK
     Route: 061
     Dates: start: 201608
  5. MULTIVITAMIN [Concomitant]
     Active Substance: VITAMINS
     Dosage: 1 TABLETS, 1X/DAY
  6. ALLOPURINOL. [Concomitant]
     Active Substance: ALLOPURINOL
     Dosage: 1 TABLETS, 1X/DAY
  7. AUGMENTIN [Concomitant]
     Active Substance: AMOXICILLIN\CLAVULANATE POTASSIUM
     Dosage: 1 TABLETS, 2X/DAY
  8. META [Concomitant]
     Indication: NEUROPATHY PERIPHERAL
  9. IRON [Concomitant]
     Active Substance: IRON
     Dosage: 1 TABLETS, 1X/DAY
  10. GLIPIZIDE. [Concomitant]
     Active Substance: GLIPIZIDE
     Dosage: 1 TABLETS, 1X/DAY
  11. ASPIRIN. [Concomitant]
     Active Substance: ASPIRIN
     Dosage: 1 TABLETS, 1X/DAY
  12. LEVOTHYROXINE. [Concomitant]
     Active Substance: LEVOTHYROXINE
     Dosage: 1 TABLETS, 1X/DAY
  13. FISH OIL [Concomitant]
     Active Substance: FISH OIL
     Dosage: 1 TABLETS, 1X/DAY
  14. CALCIUM [Concomitant]
     Active Substance: CALCIUM
     Dosage: 1 TABLETS, 1X/DAY

REACTIONS (2)
  - Drug ineffective [Unknown]
  - Lipoma [Unknown]

NARRATIVE: CASE EVENT DATE: 201608
